FAERS Safety Report 21825798 (Version 1)
Quarter: 2023Q1

REPORT INFORMATION
  Report Type: Spontaneous
  Country: US (occurrence: US)
  Receive Date: 20230105
  Receipt Date: 20230105
  Transmission Date: 20230417
  Serious: Yes (Other)
  Sender: FDA-Public Use
  Company Number: US-STRIDES ARCOLAB LIMITED-2023SP000250

PATIENT
  Age: 50 Year
  Sex: Female

DRUGS (12)
  1. PREDNISOLONE [Suspect]
     Active Substance: PREDNISOLONE
     Indication: Rheumatoid arthritis
     Dosage: UNK
     Route: 065
  2. MELOXICAM [Suspect]
     Active Substance: MELOXICAM
     Indication: Rheumatoid arthritis
     Dosage: UNK
     Route: 065
  3. ALBUTEROL [Suspect]
     Active Substance: ALBUTEROL
     Indication: Asthma
     Dosage: UNK
     Route: 065
  4. ALBUTEROL [Suspect]
     Active Substance: ALBUTEROL
     Indication: Pulmonary oedema
  5. ALBUTEROL [Suspect]
     Active Substance: ALBUTEROL
     Indication: Acute coronary syndrome
  6. ALBUTEROL [Suspect]
     Active Substance: ALBUTEROL
     Indication: Stress cardiomyopathy
  7. ALBUTEROL [Suspect]
     Active Substance: ALBUTEROL
     Indication: Panic attack
  8. OXYGEN [Suspect]
     Active Substance: OXYGEN
     Indication: Asthma
     Dosage: UNK
     Route: 065
  9. OXYGEN [Suspect]
     Active Substance: OXYGEN
     Indication: Pulmonary oedema
  10. OXYGEN [Suspect]
     Active Substance: OXYGEN
     Indication: Acute coronary syndrome
  11. OXYGEN [Suspect]
     Active Substance: OXYGEN
     Indication: Stress cardiomyopathy
  12. OXYGEN [Suspect]
     Active Substance: OXYGEN
     Indication: Panic attack

REACTIONS (5)
  - Pulmonary oedema [Recovered/Resolved]
  - Disease recurrence [Recovered/Resolved]
  - Orthopnoea [Recovered/Resolved]
  - Therapy partial responder [Unknown]
  - Off label use [Unknown]
